FAERS Safety Report 9046159 (Version 2)
Quarter: 2014Q1

REPORT INFORMATION
  Report Type: Report from Study
  Country: US (occurrence: US)
  Receive Date: 20130201
  Receipt Date: 20140116
  Transmission Date: 20141002
  Serious: Yes (Other)
  Sender: FDA-Public Use
  Company Number: PHEH2012US021081

PATIENT
  Age: 3 Year
  Sex: Female

DRUGS (2)
  1. AFINITOR [Suspect]
     Indication: TUBEROUS SCLEROSIS
     Dosage: 2.5 MG, QD
     Route: 048
     Dates: start: 20120910, end: 20131201
  2. SABRIL [Concomitant]

REACTIONS (4)
  - Circulatory collapse [Not Recovered/Not Resolved]
  - Loss of consciousness [Not Recovered/Not Resolved]
  - Convulsion [Recovered/Resolved]
  - Rhinorrhoea [Not Recovered/Not Resolved]
